FAERS Safety Report 24540273 (Version 1)
Quarter: 2024Q4

REPORT INFORMATION
  Report Type: Spontaneous
  Country: US (occurrence: US)
  Receive Date: 20241023
  Receipt Date: 20241023
  Transmission Date: 20250114
  Serious: Yes (Other)
  Sender: ASTELLAS
  Company Number: US-ASTELLAS-2024-AER-013627

PATIENT
  Sex: Female

DRUGS (3)
  1. PADCEV [Suspect]
     Active Substance: ENFORTUMAB VEDOTIN-EJFV
     Indication: Transitional cell carcinoma metastatic
     Dosage: CYCLES ARE EVERY 3 WEEKS, EVERY 21 DAYS GETS THE CYCLE.?PATIENT HAD BEEN TREATED WITH 5 CYCLES OF PA
     Route: 065
     Dates: start: 202407
  2. PADCEV [Suspect]
     Active Substance: ENFORTUMAB VEDOTIN-EJFV
     Dosage: CYCLES ARE EVERY 3 WEEKS, EVERY 21 DAYS GETS THE CYCLE.?PATIENT HAD BEEN TREATED WITH 5 CYCLES OF PA
     Route: 065
     Dates: end: 202410
  3. KEYTRUDA [Concomitant]
     Active Substance: PEMBROLIZUMAB
     Indication: Transitional cell carcinoma metastatic
     Dosage: CYCLES ARE EVERY 3 WEEKS, EVERY 21 DAYS GETS THE CYCLE.
     Route: 065
     Dates: start: 202407

REACTIONS (2)
  - Neuropathy peripheral [Recovering/Resolving]
  - Fatigue [Recovering/Resolving]
